FAERS Safety Report 7321650-9 (Version None)
Quarter: 2011Q1

REPORT INFORMATION
  Report Type: 
  Country: None (occurrence: None)
  Receive Date: 20110228
  Receipt Date: 20101109
  Transmission Date: 20110831
  Serious: No
  Sender: FDA-Public Use
  Company Number: A0892286A

PATIENT
  Age: 49 Year
  Sex: Female

DRUGS (13)
  1. VALTREX [Suspect]
     Indication: HERPES VIRUS INFECTION
     Route: 048
     Dates: start: 20100901, end: 20100914
  2. VASOTEC [Concomitant]
  3. IMIQUIMOD [Concomitant]
  4. ATENOLOL [Concomitant]
  5. ZYRTEC [Concomitant]
  6. VITAMIN B-12 [Concomitant]
  7. MULTI-VITAMIN [Concomitant]
  8. DESONIDE [Concomitant]
  9. ROLAIDS [Concomitant]
  10. ASPIRIN [Concomitant]
  11. HYDROCORTISONE CREAM [Concomitant]
  12. ACYCLOVIR [Concomitant]
  13. CITALOPRAM HYDROBROMIDE [Suspect]
     Indication: DEPRESSION
     Dosage: 20MG PER DAY
     Route: 048
     Dates: start: 20100903

REACTIONS (9)
  - OEDEMA PERIPHERAL [None]
  - URTICARIA [None]
  - ABDOMINAL DISTENSION [None]
  - SKIN TIGHTNESS [None]
  - ALOPECIA [None]
  - PRURITUS [None]
  - JOINT SWELLING [None]
  - DISTURBANCE IN ATTENTION [None]
  - VERTIGO [None]
